FAERS Safety Report 8047674-4 (Version None)
Quarter: 2012Q1

REPORT INFORMATION
  Report Type: 
  Country: None (occurrence: None)
  Receive Date: 20120116
  Receipt Date: 20120110
  Transmission Date: 20120608
  Serious: Yes (Hospitalization)
  Sender: FDA-Public Use
  Company Number: US-GILEAD-2012-0048904

PATIENT
  Sex: Female

DRUGS (2)
  1. LETAIRIS [Suspect]
     Indication: PULMONARY HYPERTENSION
     Dosage: 10 MG, UNK
     Route: 048
     Dates: start: 20110722
  2. LETAIRIS [Suspect]
     Indication: CREST SYNDROME

REACTIONS (3)
  - CORONARY ARTERY DISEASE [None]
  - RESPIRATORY FAILURE [None]
  - PNEUMONIA [None]
